FAERS Safety Report 4809274-6 (Version None)
Quarter: 2005Q4

REPORT INFORMATION
  Report Type: 
  Country: None (occurrence: None)
  Receive Date: 20051021
  Receipt Date: 20051012
  Transmission Date: 20060501
  Serious: No
  Sender: FDA-Public Use
  Company Number: 05H-090-0303141-00

PATIENT
  Age: 52 Year
  Sex: Female

DRUGS (4)
  1. HEPARIN SODIUM [Suspect]
     Indication: ANTICOAGULANT THERAPY
     Dosage: 500 IU PER HOUR, INFUSION/AFTER BOLUS DOSE
  2. HEPARIN SODIUM [Suspect]
     Indication: ANTICOAGULANT THERAPY
     Dosage: 1650 IU, ONCE
  3. ERYTHROPOIETIN (ERYTHROPOIETIN) [Concomitant]
  4. DOPAMINE HCL [Concomitant]

REACTIONS (2)
  - HAEMATOMA [None]
  - SPLENIC RUPTURE [None]
